FAERS Safety Report 10789211 (Version 1)
Quarter: 2015Q1

REPORT INFORMATION
  Report Type: Spontaneous
  Country: US (occurrence: None)
  Receive Date: 20150211
  Receipt Date: 20150211
  Transmission Date: 20150721
  Serious: Yes (Life-Threatening)
  Sender: FDA-Public Use
  Company Number: None

PATIENT
  Age: 56 Year
  Sex: Female
  Weight: 104.33 kg

DRUGS (2)
  1. EMEND [Suspect]
     Active Substance: APREPITANT
     Indication: NAUSEA
     Dosage: INTO A VEIN
     Route: 042
  2. EMEND [Suspect]
     Active Substance: APREPITANT
     Dosage: INTO A VEIN
     Route: 042

REACTIONS (13)
  - Flushing [None]
  - Dysarthria [None]
  - Dizziness [None]
  - Lip swelling [None]
  - Erythema [None]
  - Swollen tongue [None]
  - Muscle contractions involuntary [None]
  - Muscle spasms [None]
  - Dyspnoea [None]
  - Disorientation [None]
  - Swelling face [None]
  - Musculoskeletal stiffness [None]
  - Oesophageal spasm [None]

NARRATIVE: CASE EVENT DATE: 20150210
